FAERS Safety Report 20009700 (Version 1)
Quarter: 2021Q4

REPORT INFORMATION
  Report Type: Spontaneous
  Country: CZ (occurrence: CZ)
  Receive Date: 20211029
  Receipt Date: 20211029
  Transmission Date: 20220303
  Serious: Yes (Hospitalization, Other)
  Sender: FDA-Public Use
  Company Number: CZ-SA-SAC20211007000227

PATIENT
  Age: 38 Year
  Sex: Female

DRUGS (2)
  1. ENOXAPARIN SODIUM [Suspect]
     Active Substance: ENOXAPARIN SODIUM
     Indication: In vitro fertilisation
     Dosage: 20 MG, QD
     Route: 058
  2. UTROGESTAN [Concomitant]
     Active Substance: PROGESTERONE
     Dosage: UNK UNK, BID (2-0-2)

REACTIONS (7)
  - Abortion spontaneous [Unknown]
  - Genital haemorrhage [Unknown]
  - Haematoma [Unknown]
  - Condition aggravated [Unknown]
  - Injection site bruising [Unknown]
  - Maternal exposure during pregnancy [Unknown]
  - Product use in unapproved indication [Unknown]
